FAERS Safety Report 5909252-X (Version None)
Quarter: 2008Q4

REPORT INFORMATION
  Report Type: 
  Country: None (occurrence: None)
  Receive Date: 20081006
  Receipt Date: 20080924
  Transmission Date: 20090506
  Serious: Yes (Other)
  Sender: FDA-Public Use
  Company Number: JP-PFIZER INC-2008071946

PATIENT
  Sex: Female
  Weight: 35 kg

DRUGS (9)
  1. DIFLUCAN [Suspect]
     Indication: CATHETER SEPSIS
     Route: 042
     Dates: start: 20080804, end: 20080813
  2. MEROPEN [Concomitant]
     Dates: start: 20080801, end: 20080805
  3. POTACOL-R [Concomitant]
     Route: 042
     Dates: start: 20080802
  4. KN-MG3 [Concomitant]
     Route: 042
     Dates: start: 20080801
  5. VITAMEDIN INTRAVENOUS [Concomitant]
     Route: 042
     Dates: start: 20080801
  6. ALL OTHER THERAPEUTIC PRODUCTS [Concomitant]
     Dates: start: 20080308, end: 20080801
  7. AMINO ACID INJ [Concomitant]
     Dates: start: 20080308, end: 20080801
  8. SODIUM CHLORIDE 0.9% [Concomitant]
     Dates: start: 20080308, end: 20080801
  9. MULTIVITAMIN ADDITIVE [Concomitant]
     Dates: start: 20080308, end: 20080801

REACTIONS (3)
  - ALANINE AMINOTRANSFERASE INCREASED [None]
  - ASPARTATE AMINOTRANSFERASE INCREASED [None]
  - GAMMA-GLUTAMYLTRANSFERASE INCREASED [None]
